FAERS Safety Report 4828979-4 (Version None)
Quarter: 2005Q4

REPORT INFORMATION
  Report Type: 
  Country: None (occurrence: None)
  Receive Date: 20051014
  Receipt Date: 20050823
  Transmission Date: 20060501
  Serious: No
  Sender: FDA-Public Use
  Company Number: 2005SP002472

PATIENT
  Age: 72 Year
  Sex: Female

DRUGS (4)
  1. LUNESTA [Suspect]
     Dosage: 3 MG;HS;ORAL
     Route: 048
     Dates: start: 20050101
  2. LORAZEPAM [Concomitant]
  3. AMBIEN [Concomitant]
  4. DIAZEPAM [Concomitant]

REACTIONS (2)
  - DYSGEUSIA [None]
  - FATIGUE [None]
